FAERS Safety Report 13450349 (Version 4)
Quarter: 2017Q3

REPORT INFORMATION
  Report Type: Report from Study
  Country: CZ (occurrence: CZ)
  Receive Date: 20170417
  Receipt Date: 20170728
  Transmission Date: 20171127
  Serious: Yes (Life-Threatening, Hospitalization)
  Sender: FDA-Public Use
  Company Number: CZ-ROCHE-1919379

PATIENT
  Age: 4 Year
  Sex: Male
  Weight: 19.7 kg

DRUGS (31)
  1. CELECOXIB. [Suspect]
     Active Substance: CELECOXIB
     Indication: MEDULLOBLASTOMA RECURRENT
     Dosage: LAST DOSE BEFORE CHEMICAL ARACHNOIDITIS ON 25/MAY2017
     Route: 048
     Dates: start: 20170302, end: 20170713
  2. ETOPOSIDE. [Suspect]
     Active Substance: ETOPOSIDE
     Dosage: 5 X 0.5 MG?LAST 5 DAY SERIES FROM 25/MAY/2017.
     Route: 037
     Dates: start: 20170525, end: 20170614
  3. LIPOSOMAL CYTARABINE [Suspect]
     Active Substance: CYTARABINE
     Dosage: 25-35 MG?ALTERNATING WITH INTRATHECAL ETOPOSIDE PHOSPHATE
     Route: 037
     Dates: start: 20170316
  4. PYRIDOXINE HYDROCHLORIDE/THIAMINE DISULFIDE [Concomitant]
     Route: 048
     Dates: start: 20160921
  5. EUTHYROX [Concomitant]
     Active Substance: LEVOTHYROXINE SODIUM
     Indication: HYPOTHYROIDISM
     Route: 048
     Dates: start: 20170513
  6. ENAP (CZECH REPUBLIC) [Concomitant]
     Route: 048
     Dates: start: 20170620
  7. LOMIR [Concomitant]
     Indication: HYPERTENSION
     Dosage: ROUTE-PER OS
     Route: 048
     Dates: start: 20170602
  8. BEVACIZUMAB. [Suspect]
     Active Substance: BEVACIZUMAB
     Indication: MEDULLOBLASTOMA RECURRENT
     Dosage: LAST DOSE BEFORE CHEMICAL ARACHNOIDITIS ON 25/MAY2017
     Route: 042
     Dates: start: 20170302
  9. FENOFIBRATE. [Suspect]
     Active Substance: FENOFIBRATE
     Indication: MEDULLOBLASTOMA RECURRENT
     Dosage: LAST DOSE BEFORE CHEMICAL ARACHNOIDITIS ON 25/MAY2017
     Route: 048
     Dates: start: 20170302
  10. CYCLOPHOSPHAMIDE. [Suspect]
     Active Substance: CYCLOPHOSPHAMIDE
     Indication: MEDULLOBLASTOMA RECURRENT
     Dosage: LAST DOSE BEFORE CHEMICAL ARACHNOIDITIS ON 25/MAY2017
     Route: 048
     Dates: start: 20170302
  11. ENAP (CZECH REPUBLIC) [Concomitant]
     Route: 048
     Dates: start: 20170602
  12. BEVACIZUMAB. [Suspect]
     Active Substance: BEVACIZUMAB
     Route: 042
     Dates: start: 20170330
  13. THALIDOMIDE [Suspect]
     Active Substance: THALIDOMIDE
     Route: 048
  14. ETOPOSIDE. [Suspect]
     Active Substance: ETOPOSIDE
     Indication: MEDULLOBLASTOMA RECURRENT
     Dosage: LAST DOSE BEFORE CHEMICAL ARACHNOIDITIS ON 25/MAY2017
     Route: 048
     Dates: start: 20170302
  15. HELICID [Concomitant]
     Route: 048
     Dates: start: 20170511
  16. THALIDOMIDE [Suspect]
     Active Substance: THALIDOMIDE
     Indication: MEDULLOBLASTOMA RECURRENT
     Dosage: LAST DOSE BEFORE CHEMICAL ARACHNOIDITIS ON 25/MAY2017
     Route: 048
     Dates: start: 20170302
  17. CYCLOPHOSPHAMIDE. [Suspect]
     Active Substance: CYCLOPHOSPHAMIDE
     Dosage: ALTERNATING 21-DAY CYCLES OF DAILY ORAL ETOPOSIDE AND CYCLOPHOSPHAMIDE
     Route: 048
     Dates: start: 20170323
  18. CYCLOPHOSPHAMIDE. [Suspect]
     Active Substance: CYCLOPHOSPHAMIDE
     Route: 048
     Dates: start: 20170630, end: 20170713
  19. HELICID [Concomitant]
     Route: 042
  20. ETOPOSIDE. [Suspect]
     Active Substance: ETOPOSIDE
     Dosage: 35-50 MG/M2?ALTERNATING 21-DAY CYCLES OF DAILY ORAL ETOPOSIDE AND CYCLOPHOSPHAMIDE
     Route: 048
     Dates: start: 20170322
  21. CYCLOPHOSPHAMIDE. [Suspect]
     Active Substance: CYCLOPHOSPHAMIDE
     Route: 048
     Dates: start: 20170330
  22. BEVACIZUMAB. [Suspect]
     Active Substance: BEVACIZUMAB
     Route: 042
     Dates: start: 20170525
  23. BEVACIZUMAB. [Suspect]
     Active Substance: BEVACIZUMAB
     Route: 042
     Dates: start: 20170707
  24. ETOPOSIDE. [Suspect]
     Active Substance: ETOPOSIDE
     Dosage: 5 X 0.5 MG?DAY 1 TO 5; ALTERNATING WITH INTRATHECAL ETOPOSIDE PHOSPHATE
     Route: 037
     Dates: start: 20170330
  25. LIPOSOMAL CYTARABINE [Suspect]
     Active Substance: CYTARABINE
     Route: 037
     Dates: start: 20170707
  26. CELECOXIB. [Suspect]
     Active Substance: CELECOXIB
     Dosage: 50-400 MG
     Route: 048
  27. FENOFIBRATE. [Suspect]
     Active Substance: FENOFIBRATE
     Route: 048
     Dates: start: 20170302, end: 20170713
  28. LIPOSOMAL CYTARABINE [Suspect]
     Active Substance: CYTARABINE
     Indication: MEDULLOBLASTOMA RECURRENT
     Dosage: LAST DOSE BEFORE CHEMICAL ARACHNOIDITIS ON 25/MAY2017
     Route: 037
     Dates: start: 20170302
  29. LIPOSOMAL CYTARABINE [Suspect]
     Active Substance: CYTARABINE
     Route: 037
     Dates: start: 20170511
  30. SUMETROLIM [Concomitant]
     Route: 048
     Dates: start: 20160412
  31. ENAP (CZECH REPUBLIC) [Concomitant]
     Indication: HYPERTENSION
     Route: 048
     Dates: start: 20170513

REACTIONS (5)
  - Altered state of consciousness [Recovered/Resolved]
  - Arachnoiditis [Not Recovered/Not Resolved]
  - Respiratory failure [Not Recovered/Not Resolved]
  - Pneumocystis jirovecii pneumonia [Not Recovered/Not Resolved]
  - Mechanical ventilation [Not Recovered/Not Resolved]

NARRATIVE: CASE EVENT DATE: 20170407
